FAERS Safety Report 19937553 (Version 2)
Quarter: 2021Q4

REPORT INFORMATION
  Report Type: Report from Study
  Country: US (occurrence: US)
  Receive Date: 20211011
  Receipt Date: 20211208
  Transmission Date: 20220303
  Serious: Yes (Death, Other)
  Sender: FDA-Public Use
  Company Number: US-ACADIA PHARMACEUTICALS INC.-ACA-2021-PIM-003523

PATIENT
  Sex: Male

DRUGS (12)
  1. NUPLAZID [Suspect]
     Active Substance: PIMAVANSERIN TARTRATE
     Indication: Parkinson^s disease
     Dosage: 34 MILLIGRAM, QD
     Route: 048
     Dates: start: 202103, end: 20210912
  2. ASPIRIN [Concomitant]
     Active Substance: ASPIRIN
     Dosage: 81
  3. SINEMET [Concomitant]
     Active Substance: CARBIDOPA\LEVODOPA
  4. COLACE [Concomitant]
     Active Substance: DOCUSATE SODIUM
  5. IRON [Concomitant]
     Active Substance: IRON
  6. FLONASE [Concomitant]
     Active Substance: FLUTICASONE PROPIONATE
  7. FOLIC ACID [Concomitant]
     Active Substance: FOLIC ACID
  8. MELATONIN [Concomitant]
     Active Substance: MELATONIN
  9. MIDODRINE [Concomitant]
     Active Substance: MIDODRINE
  10. MIRTAZAPINE [Concomitant]
     Active Substance: MIRTAZAPINE
  11. PANTOPRAZOLE [Concomitant]
     Active Substance: PANTOPRAZOLE
  12. RIVASTIGMINE [Concomitant]
     Active Substance: RIVASTIGMINE

REACTIONS (3)
  - Failure to thrive [Recovered/Resolved]
  - Dementia [Recovered/Resolved]
  - Parkinson^s disease [Recovered/Resolved]
